FAERS Safety Report 25151574 (Version 2)
Quarter: 2025Q2

REPORT INFORMATION
  Report Type: Spontaneous
  Country: BR (occurrence: BR)
  Receive Date: 20250402
  Receipt Date: 20250430
  Transmission Date: 20250716
  Serious: Yes (Death, Hospitalization, Other)
  Sender: SANDOZ
  Company Number: BR-002147023-NVSC2025BR053469

PATIENT
  Age: 95 Year
  Sex: Female
  Weight: 47 kg

DRUGS (1)
  1. EXELON [Suspect]
     Active Substance: RIVASTIGMINE TARTRATE
     Indication: Dementia Alzheimer^s type
     Dosage: 13.3 MG, QD (EXTENDED RELEASE)
     Route: 062
     Dates: end: 20250318

REACTIONS (5)
  - Pneumonia [Fatal]
  - Upper limb fracture [Fatal]
  - Fall [Fatal]
  - Aspiration [Not Recovered/Not Resolved]
  - Oxygen saturation decreased [Not Recovered/Not Resolved]
